FAERS Safety Report 18641698 (Version 2)
Quarter: 2021Q1

REPORT INFORMATION
  Report Type: Spontaneous
  Country: JP (occurrence: JP)
  Receive Date: 20201221
  Receipt Date: 20210113
  Transmission Date: 20210419
  Serious: Yes (Other)
  Sender: FDA-Public Use
  Company Number: NVSJ2020JP013893

PATIENT

DRUGS (1)
  1. EQUMET [Suspect]
     Active Substance: METFORMIN HYDROCHLORIDE\VILDAGLIPTIN
     Indication: TYPE 2 DIABETES MELLITUS
     Dosage: 1DF, METFORMIN HYDROCHLORIDE UNKNOWN/ VILDAGLIPTIN 50MG
     Route: 048

REACTIONS (1)
  - Emphysema [Unknown]
